FAERS Safety Report 6354797-4 (Version None)
Quarter: 2009Q3

REPORT INFORMATION
  Report Type: 
  Country: None (occurrence: None)
  Receive Date: 20090909
  Receipt Date: 20090825
  Transmission Date: 20100115
  Serious: No
  Sender: FDA-Public Use
  Company Number: C-09-0198-W

PATIENT
  Age: 73 Year
  Sex: Male
  Weight: 77.1115 kg

DRUGS (7)
  1. LISINOPRIL [Suspect]
     Indication: AORTIC ANEURYSM
     Dosage: ONE TABLET/2X DAILY/047
     Dates: start: 20090801
  2. LISINOPRIL [Suspect]
     Indication: HYPERTENSION
     Dosage: ONE TABLET/2X DAILY/047
     Dates: start: 20090801
  3. METOPROLOL TARTRATE [Concomitant]
  4. LIPITOR [Concomitant]
  5. FINASTERIDE [Concomitant]
  6. LEVOTHYROXINE SODIUM [Concomitant]
  7. ASPIRIN [Concomitant]

REACTIONS (3)
  - BLOOD PRESSURE INCREASED [None]
  - DRUG INEFFECTIVE [None]
  - PRODUCT SUBSTITUTION ISSUE [None]
